FAERS Safety Report 9711905 (Version 1)
Quarter: 2013Q4

REPORT INFORMATION
  Report Type: Spontaneous
  Country: US (occurrence: US)
  Receive Date: 20131126
  Receipt Date: 20131126
  Transmission Date: 20140711
  Serious: No
  Sender: FDA-Public Use
  Company Number: US-BRISTOL-MYERS SQUIBB COMPANY-18828657

PATIENT
  Age: 34 Year
  Sex: Male
  Weight: 122.45 kg

DRUGS (9)
  1. BYDUREON [Suspect]
     Indication: TYPE 2 DIABETES MELLITUS
     Dosage: PRESCRIPTION#: 1147575
     Route: 058
     Dates: start: 20130401
  2. METFORMIN [Concomitant]
     Route: 048
  3. NOVOLOG [Concomitant]
  4. INSULIN [Concomitant]
     Dosage: 1 DF-40 U TO 60 U INJ/SQ WITH MEALS AS NEEDED
     Route: 058
  5. LANTUS [Concomitant]
     Dosage: 50 UNITS QHS/INJ/SQ
     Route: 058
  6. ENALAPRIL [Concomitant]
  7. LIVALO [Concomitant]
     Route: 048
  8. LESCOL [Concomitant]
  9. ASPIRIN [Concomitant]

REACTIONS (5)
  - Night sweats [Recovered/Resolved]
  - Irritability [Not Recovered/Not Resolved]
  - Blood glucose increased [Recovering/Resolving]
  - Blood glucose decreased [Recovering/Resolving]
  - Confusional state [Not Recovered/Not Resolved]
